FAERS Safety Report 8609917-5 (Version None)
Quarter: 2012Q3

REPORT INFORMATION
  Report Type: 
  Country: None (occurrence: None)
  Receive Date: 20120821
  Receipt Date: 20120816
  Transmission Date: 20120928
  Serious: Yes (Other)
  Sender: FDA-Public Use
  Company Number: US-PFIZER INC-2012202212

PATIENT
  Age: 74 Year
  Sex: Female
  Weight: 119 kg

DRUGS (2)
  1. DILANTIN [Suspect]
     Indication: CONVULSION
     Dosage: 100 MG, 4X/DAY
     Route: 048
     Dates: start: 20071101
  2. SYNTHROID [Concomitant]
     Indication: THYROID DISORDER
     Dosage: 25 UG, DAILY

REACTIONS (1)
  - DRUG INEFFECTIVE [None]
